FAERS Safety Report 9073896 (Version 1)
Quarter: 2013Q1

REPORT INFORMATION
  Report Type: Report from Study
  Country: US (occurrence: US)
  Receive Date: 20130129
  Receipt Date: 20130129
  Transmission Date: 20140127
  Serious: No
  Sender: FDA-Public Use
  Company Number: US-ABBOTT-12P-163-0918808-00

PATIENT
  Age: 50 Year
  Sex: Female

DRUGS (14)
  1. HUMIRA 40 MG/0.8 ML PEN [Suspect]
     Indication: RHEUMATOID ARTHRITIS
     Route: 058
     Dates: start: 20120312
  2. TEGRETOL [Concomitant]
     Indication: CONVULSION
  3. BENICAR [Concomitant]
     Indication: HYPERTENSION
  4. BYSTOLIC [Concomitant]
     Indication: HYPERTENSION
  5. PLAVIX [Concomitant]
     Indication: CORONARY ARTERIAL STENT INSERTION
  6. URISPAS [Concomitant]
     Indication: BLADDER SPASM
  7. NITROGLYCERIN [Concomitant]
     Indication: CHEST PAIN
     Dosage: PATCH; AS NEEDED
  8. ASPIRIN [Concomitant]
     Indication: PRODUCT USED FOR UNKNOWN INDICATION
     Dosage: DAILY
  9. PREMARIN [Concomitant]
     Indication: FEELING HOT
  10. LAMISIL [Concomitant]
     Indication: PRODUCT USED FOR UNKNOWN INDICATION
  11. LASIX [Concomitant]
     Indication: PRODUCT USED FOR UNKNOWN INDICATION
  12. POTASSIUM [Concomitant]
     Indication: PRODUCT USED FOR UNKNOWN INDICATION
  13. DIAZEPAM [Concomitant]
     Indication: CONVULSION
  14. MAGIC SWIZZLE [Concomitant]
     Indication: PRODUCT USED FOR UNKNOWN INDICATION

REACTIONS (4)
  - Vision blurred [Not Recovered/Not Resolved]
  - Agitation [Not Recovered/Not Resolved]
  - Restlessness [Not Recovered/Not Resolved]
  - Emotional distress [Unknown]
